FAERS Safety Report 8424007-2 (Version None)
Quarter: 2012Q2

REPORT INFORMATION
  Report Type: 
  Country: None (occurrence: None)
  Receive Date: 20120608
  Receipt Date: 20110126
  Transmission Date: 20120825
  Serious: Yes (Other)
  Sender: FDA-Public Use
  Company Number: PHHY2011PT02024

PATIENT
  Age: 3 Year
  Sex: Male

DRUGS (7)
  1. VITAMIN D [Concomitant]
     Dosage: UNK
     Route: 061
  2. CYCLOSPORINE [Suspect]
     Indication: ERYTHRODERMIC PSORIASIS
     Dosage: 4 MG/KG, UNK
     Route: 048
  3. GENTAMICIN [Concomitant]
     Indication: PSORIASIS
  4. FLUCLOXACILLIN [Interacting]
     Indication: ERYTHRODERMIC PSORIASIS
  5. GENTAMICIN [Concomitant]
     Indication: IMPETIGO
  6. EMOLLIENTS [Concomitant]
  7. FLUCLOXACILLIN [Interacting]
     Indication: IMPETIGO

REACTIONS (8)
  - LEUKOCYTOSIS [None]
  - DRUG HYPERSENSITIVITY [None]
  - URTICARIA [None]
  - C-REACTIVE PROTEIN INCREASED [None]
  - DRUG INTERACTION [None]
  - ANGIOEDEMA [None]
  - SKIN LESION [None]
  - PYREXIA [None]
